FAERS Safety Report 14798574 (Version 1)
Quarter: 2018Q2

REPORT INFORMATION
  Report Type: Spontaneous
  Country: FR (occurrence: FR)
  Receive Date: 20180424
  Receipt Date: 20180424
  Transmission Date: 20180711
  Serious: Yes (Other)
  Sender: FDA-Public Use
  Company Number: FR-MERCK KGAA-2046356

PATIENT
  Age: 57 Year
  Sex: Female

DRUGS (1)
  1. NOVOTHYROX [Suspect]
     Active Substance: LEVOTHYROXINE SODIUM
     Indication: PRODUCT USED FOR UNKNOWN INDICATION
     Dates: start: 201704

REACTIONS (19)
  - Arthralgia [None]
  - Fatigue [None]
  - Hot flush [None]
  - High density lipoprotein decreased [None]
  - Muscle spasms [None]
  - Alopecia [None]
  - Gamma-glutamyltransferase increased [None]
  - Monoparesis [None]
  - Loss of personal independence in daily activities [None]
  - Blood triglycerides increased [None]
  - Low density lipoprotein increased [None]
  - Myalgia [None]
  - Depression [None]
  - Paraesthesia [None]
  - Hepatitis A virus test positive [None]
  - Hepatitis B core antibody positive [None]
  - Weight increased [None]
  - Pain [None]
  - Serum ferritin increased [None]

NARRATIVE: CASE EVENT DATE: 2017
